FAERS Safety Report 20345819 (Version 2)
Quarter: 2022Q2

REPORT INFORMATION
  Report Type: Spontaneous
  Country: US (occurrence: US)
  Receive Date: 20220118
  Receipt Date: 20220528
  Transmission Date: 20220720
  Serious: No
  Sender: FDA-Public Use
  Company Number: US-BRISTOL-MYERS SQUIBB COMPANY-BMS-2022-003437

PATIENT
  Age: 89 Year
  Sex: Female
  Weight: 56.245 kg

DRUGS (2)
  1. ELIQUIS [Suspect]
     Active Substance: APIXABAN
     Indication: Cerebrovascular accident prophylaxis
     Route: 048
     Dates: start: 20220107
  2. ELIQUIS [Suspect]
     Active Substance: APIXABAN
     Dosage: TO TAKE HALF ONE IN THE MORNING AND AT NIGHT
     Route: 048
     Dates: start: 20220109

REACTIONS (2)
  - Product physical issue [Unknown]
  - Intentional product use issue [Unknown]

NARRATIVE: CASE EVENT DATE: 20220109
